FAERS Safety Report 12091123 (Version 1)
Quarter: 2016Q1

REPORT INFORMATION
  Report Type: Spontaneous
  Country: US (occurrence: US)
  Receive Date: 20160218
  Receipt Date: 20160218
  Transmission Date: 20160526
  Serious: Yes (Hospitalization, Disabling, Other)
  Sender: FDA-Public Use
  Company Number: US-JUBILANT CADISTA PHARMACEUTICALS-2016JUB00046

PATIENT
  Age: 16 Year
  Sex: Male

DRUGS (1)
  1. LAMOTRIGINE. [Suspect]
     Active Substance: LAMOTRIGINE
     Indication: COMPLEX PARTIAL SEIZURES
     Route: 065

REACTIONS (7)
  - Blindness [Recovering/Resolving]
  - Cogan^s syndrome [Recovered/Resolved with Sequelae]
  - Tubulointerstitial nephritis and uveitis syndrome [Recovering/Resolving]
  - Retinal artery occlusion [Unknown]
  - Swelling face [Unknown]
  - Rash [Unknown]
  - Scleritis [Unknown]
